FAERS Safety Report 8826506 (Version 2)
Quarter: 2012Q4

REPORT INFORMATION
  Report Type: 
  Country: US (occurrence: US)
  Receive Date: 20121005
  Receipt Date: 20121011
  Transmission Date: 20130627
  Serious: Yes (Life-Threatening)
  Sender: FDA-Public Use
  Company Number: 2012SP002732

PATIENT
  Age: 21 Year
  Sex: Male

DRUGS (1)
  1. LATUDA [Suspect]
     Indication: PRODUCT USED FOR UNKNOWN INDICATION
     Route: 048

REACTIONS (4)
  - Intentional self-injury [Recovered/Resolved with Sequelae]
  - Aggression [Recovered/Resolved]
  - Psychological trauma [Unknown]
  - Akathisia [Recovered/Resolved]
